FAERS Safety Report 10047179 (Version 1)
Quarter: 2014Q1

REPORT INFORMATION
  Report Type: Spontaneous
  Country: US (occurrence: US)
  Receive Date: 20140331
  Receipt Date: 20140331
  Transmission Date: 20141002
  Serious: No
  Sender: FDA-Public Use
  Company Number: US-MYLANLABS-2013S1017064

PATIENT
  Age: 66 Year
  Sex: Female
  Weight: 54.43 kg

DRUGS (3)
  1. FENTANYL TRANSDERMAL SYSTEM [Suspect]
     Indication: ABDOMINAL PAIN UPPER
     Dosage: Q3D
     Route: 062
     Dates: start: 2013
  2. COREG [Concomitant]
     Indication: BLOOD PRESSURE INCREASED
     Dosage: TAKEN FOR YEARS
     Route: 048
  3. IRBESARTAN [Concomitant]
     Indication: BLOOD PRESSURE INCREASED
     Dosage: TAKEN FOR YEARS
     Route: 048

REACTIONS (2)
  - Application site pain [Not Recovered/Not Resolved]
  - Application site erythema [Not Recovered/Not Resolved]
